FAERS Safety Report 12464509 (Version 1)
Quarter: 2016Q2

REPORT INFORMATION
  Report Type: Spontaneous
  Country: US (occurrence: US)
  Receive Date: 20160614
  Receipt Date: 20160614
  Transmission Date: 20160815
  Serious: No
  Sender: FDA-Public Use
  Company Number: US-BAUSCH-BL-2016-008387

PATIENT
  Sex: Female
  Weight: 60.84 kg

DRUGS (6)
  1. ADDYI [Suspect]
     Active Substance: FLIBANSERIN
     Indication: LIBIDO DECREASED
     Route: 048
     Dates: start: 20151221
  2. CRANBERRY. [Concomitant]
     Active Substance: CRANBERRY
     Indication: SUPPLEMENTATION THERAPY
     Route: 048
  3. LINZESS [Concomitant]
     Active Substance: LINACLOTIDE
     Indication: LAXATIVE SUPPORTIVE CARE
     Route: 048
  4. SINGULAIR [Concomitant]
     Active Substance: MONTELUKAST SODIUM
     Indication: HYPERSENSITIVITY
     Route: 048
  5. AZELASTINE [Concomitant]
     Active Substance: AZELASTINE
     Indication: HYPERSENSITIVITY
     Route: 045
  6. METAPROLOL AND HCTZ [Concomitant]
     Indication: HYPERTENSION
     Route: 048

REACTIONS (3)
  - Weight decreased [Not Recovered/Not Resolved]
  - Energy increased [Not Recovered/Not Resolved]
  - Product use issue [Unknown]
